FAERS Safety Report 9929314 (Version 1)
Quarter: 2014Q1

REPORT INFORMATION
  Report Type: Spontaneous
  Country: US (occurrence: US)
  Receive Date: 20140227
  Receipt Date: 20140227
  Transmission Date: 20141002
  Serious: No
  Sender: FDA-Public Use
  Company Number: US-BAYER-2014-030361

PATIENT
  Age: 25 Year
  Sex: Female

DRUGS (2)
  1. GADAVIST [Suspect]
     Indication: MIGRAINE
     Dosage: 9 ML, ONCE
     Dates: start: 20140224, end: 20140224
  2. GADAVIST [Suspect]
     Indication: NUCLEAR MAGNETIC RESONANCE IMAGING BRAIN

REACTIONS (3)
  - Hypersensitivity [None]
  - Pruritus generalised [None]
  - Rash [None]
